FAERS Safety Report 8825758 (Version 9)
Quarter: 2014Q2

REPORT INFORMATION
  Report Type: Report from Study
  Country: FR (occurrence: FR)
  Receive Date: 20121004
  Receipt Date: 20140528
  Transmission Date: 20141212
  Serious: Yes (Other)
  Sender: FDA-Public Use
  Company Number: FR-VERTEX PHARMACEUTICAL INC.-000000000000001290

PATIENT
  Age: 28 Year
  Sex: Male
  Weight: 59 kg

DRUGS (5)
  1. VX-950 (TELAPREVIR) [Suspect]
     Indication: CHRONIC HEPATITIS C
     Dosage: 2 DF, TID
     Route: 048
     Dates: start: 20120417
  2. COPEGUS [Suspect]
     Indication: CHRONIC HEPATITIS C
     Dosage: 1000 MG, QD
     Route: 048
     Dates: start: 20120417, end: 20130316
  3. PEGINTERFERON ALFA-2A [Suspect]
     Indication: CHRONIC HEPATITIS C
     Dosage: 180 ?G, QW
     Route: 058
     Dates: start: 20120417
  4. PEGINTERFERON ALFA-2A [Suspect]
     Dosage: 180 ?G, QW
     Route: 058
     Dates: start: 20121031, end: 20130130
  5. BEPANTHENE [Concomitant]
     Indication: PRODUCT USED FOR UNKNOWN INDICATION
     Dosage: UNK UNK, BID
     Route: 054
     Dates: start: 20120509

REACTIONS (1)
  - Neutrophil count decreased [Recovered/Resolved]
